FAERS Safety Report 6406308-2 (Version None)
Quarter: 2009Q4

REPORT INFORMATION
  Report Type: 
  Country: None (occurrence: None)
  Receive Date: 20091019
  Receipt Date: 20091012
  Transmission Date: 20100525
  Serious: Yes (Death)
  Sender: FDA-Public Use
  Company Number: PHEH2009US13620

PATIENT
  Sex: Male

DRUGS (3)
  1. EXJADE [Suspect]
     Indication: NEOPLASM
     Dosage: 2000 MG, QD
     Route: 048
     Dates: start: 20080829
  2. EXJADE [Suspect]
     Indication: IRON METABOLISM DISORDER
  3. EXJADE [Suspect]
     Indication: MYELODYSPLASTIC SYNDROME

REACTIONS (1)
  - DEATH [None]
